FAERS Safety Report 5726909-4 (Version None)
Quarter: 2008Q2

REPORT INFORMATION
  Report Type: 
  Country: None (occurrence: None)
  Receive Date: 20080502
  Receipt Date: 20080422
  Transmission Date: 20081010
  Serious: Yes (Other)
  Sender: FDA-Public Use
  Company Number: US-PFIZER INC-2008036380

PATIENT
  Sex: Male
  Weight: 61.4 kg

DRUGS (12)
  1. ZYVOX [Suspect]
     Indication: STAPHYLOCOCCAL INFECTION
  2. ZYVOX [Interacting]
     Indication: PNEUMONIA
  3. SEROQUEL [Interacting]
  4. XOPENEX [Concomitant]
  5. ATROVENT [Concomitant]
  6. COMBIVENT [Concomitant]
  7. POTASSIUM CHLORIDE [Concomitant]
  8. PREVACID [Concomitant]
  9. ARIXTRA [Concomitant]
  10. SANTYL [Concomitant]
     Route: 061
  11. CEFEPIME [Concomitant]
  12. CASPOFUNGIN [Concomitant]

REACTIONS (3)
  - BLOOD CULTURE POSITIVE [None]
  - DRUG INTERACTION [None]
  - SEROTONIN SYNDROME [None]
